FAERS Safety Report 5373773-1 (Version None)
Quarter: 2007Q2

REPORT INFORMATION
  Report Type: 
  Country: None (occurrence: None)
  Receive Date: 20070628
  Receipt Date: 20070625
  Transmission Date: 20071010
  Serious: Yes (Life-Threatening)
  Sender: FDA-Public Use
  Company Number: US-AMGEN-US225511

PATIENT
  Sex: Female

DRUGS (11)
  1. ENBREL [Suspect]
     Indication: RHEUMATOID ARTHRITIS
     Route: 058
     Dates: start: 20021121
  2. AZULFIDINE [Concomitant]
     Route: 065
  3. SYNTHROID [Concomitant]
     Route: 065
  4. PERCOCET [Concomitant]
     Route: 065
  5. HYDROCHLOROTHIAZIDE [Concomitant]
     Route: 065
  6. FOLIC ACID [Concomitant]
     Route: 065
  7. PLAVIX [Concomitant]
     Route: 065
  8. ZOCOR [Concomitant]
     Route: 065
  9. BENICAR [Concomitant]
     Route: 065
  10. SERTRALINE [Concomitant]
     Route: 065
  11. VITAMIN D [Concomitant]
     Route: 065

REACTIONS (1)
  - PERIPHERAL VASCULAR DISORDER [None]
